FAERS Safety Report 7624784-4 (Version None)
Quarter: 2011Q3

REPORT INFORMATION
  Report Type: 
  Country: None (occurrence: None)
  Receive Date: 20110720
  Receipt Date: 20110715
  Transmission Date: 20111222
  Serious: No
  Sender: FDA-Public Use
  Company Number: US-BAYER-2011-062425

PATIENT

DRUGS (1)
  1. AVELOX [Suspect]

REACTIONS (3)
  - THROAT TIGHTNESS [None]
  - RASH GENERALISED [None]
  - DRUG HYPERSENSITIVITY [None]
